FAERS Safety Report 9518828 (Version 1)
Quarter: 2013Q3

REPORT INFORMATION
  Report Type: Spontaneous
  Country: US (occurrence: None)
  Receive Date: 20130910
  Receipt Date: 20130910
  Transmission Date: 20140515
  Serious: Yes (Other)
  Sender: FDA-Public Use
  Company Number: AUR-APL-2013-04225

PATIENT
  Age: 21 Year
  Sex: Male

DRUGS (3)
  1. RISPERIDONE (RISPERIDONE) [Suspect]
     Indication: SCHIZOPHRENIA
  2. OLANZAPINE (OLANZAPINE) [Suspect]
     Indication: SCHIZOPHRENIA
  3. ILOPERIDONE [Suspect]
     Indication: SCHIZOPHRENIA
     Dosage: 16 MG (8 MG, 2 IN 1 D)

REACTIONS (1)
  - Extrapyramidal disorder [None]
